FAERS Safety Report 9475970 (Version 1)
Quarter: 2013Q3

REPORT INFORMATION
  Report Type: Spontaneous
  Country: US (occurrence: US)
  Receive Date: 20130826
  Receipt Date: 20130826
  Transmission Date: 20140515
  Serious: Yes (Other)
  Sender: FDA-Public Use
  Company Number: US-PFIZER INC-2013245807

PATIENT
  Age: 61 Year
  Sex: Female
  Weight: 68.03 kg

DRUGS (2)
  1. LYRICA [Suspect]
     Indication: POSTOPERATIVE CARE
     Dosage: 75 MG, 2X/DAY
     Dates: start: 2011
  2. HYDROCHLOROTHIAZIDE [Concomitant]
     Indication: HYPERTENSION
     Dosage: UNK

REACTIONS (1)
  - Arthropathy [Unknown]
